FAERS Safety Report 5022866-7 (Version None)
Quarter: 2006Q2

REPORT INFORMATION
  Report Type: 
  Country: None (occurrence: None)
  Receive Date: 20060426
  Receipt Date: 20060321
  Transmission Date: 20061013
  Serious: Yes (Other)
  Sender: FDA-Public Use
  Company Number: 2006041716

PATIENT
  Sex: Male
  Weight: 104.3273 kg

DRUGS (4)
  1. LYRICA [Suspect]
     Indication: RESTLESS LEGS SYNDROME
     Dosage: 150 MG (75 MG,2 IN 1 D)
     Dates: start: 20060101
  2. ZESTRIL [Concomitant]
  3. FOLIC ACID [Concomitant]
  4. OTHER ANTIDIARRHOEALS (OTHER ANTIDIARRHOEALS) [Concomitant]

REACTIONS (7)
  - BALANCE DISORDER [None]
  - BURNING SENSATION [None]
  - HYPOAESTHESIA [None]
  - NOCTURIA [None]
  - OEDEMA PERIPHERAL [None]
  - PAIN IN EXTREMITY [None]
  - VISION BLURRED [None]
